FAERS Safety Report 7999109-5 (Version None)
Quarter: 2011Q4

REPORT INFORMATION
  Report Type: 
  Country: None (occurrence: None)
  Receive Date: 20111221
  Receipt Date: 20111215
  Transmission Date: 20120403
  Serious: Yes (Other)
  Sender: FDA-Public Use
  Company Number: DE-PFIZER INC-2011280780

PATIENT
  Sex: Male

DRUGS (5)
  1. MIRTAZAPINE [Concomitant]
     Dosage: 30 MG, 1X/DAY IN THE EVENING
  2. XALATAN [Suspect]
     Indication: INTRAOCULAR PRESSURE INCREASED
  3. SIMVASTATIN [Concomitant]
  4. XALATAN [Suspect]
     Indication: OPEN ANGLE GLAUCOMA
  5. GRAPEFRUIT JUICE [Concomitant]

REACTIONS (2)
  - DRUG EFFECT DECREASED [None]
  - INTRAOCULAR PRESSURE INCREASED [None]
